FAERS Safety Report 5669257-3 (Version None)
Quarter: 2008Q1

REPORT INFORMATION
  Report Type: 
  Country: None (occurrence: None)
  Receive Date: 20080317
  Receipt Date: 20080304
  Transmission Date: 20080703
  Serious: Yes (Other)
  Sender: FDA-Public Use
  Company Number: GB-ELI_LILLY_AND_COMPANY-GB200803001053

PATIENT
  Age: 18 Year
  Sex: Male

DRUGS (2)
  1. ZYPREXA [Suspect]
     Indication: PSYCHOTIC DISORDER
     Dosage: 2.5 MG, DAILY (1/D)
  2. ZYPREXA [Suspect]
     Dosage: 5 MG, DAILY (1/D)

REACTIONS (3)
  - BLOOD CHOLESTEROL INCREASED [None]
  - HEPATIC FUNCTION ABNORMAL [None]
  - TOTAL CHOLESTEROL/HDL RATIO INCREASED [None]
